FAERS Safety Report 4576527-9 (Version None)
Quarter: 2005Q1

REPORT INFORMATION
  Report Type: 
  Country: None (occurrence: None)
  Receive Date: 20050119
  Receipt Date: 20040428
  Transmission Date: 20050727
  Serious: Yes (Hospitalization)
  Sender: FDA-Public Use
  Company Number: A03200401322

PATIENT
  Age: 64 Year
  Sex: Male
  Weight: 90.7194 kg

DRUGS (5)
  1. PLAVIX [Suspect]
     Indication: STENT PLACEMENT
     Dosage: 75 MG QD - ORAL
     Route: 048
     Dates: start: 20040505, end: 20040101
  2. ASPIRIN [Suspect]
     Indication: ANTICOAGULANT THERAPY
     Dosage: 325 MG QD - ORAL
     Route: 048
     Dates: start: 20040505, end: 20040101
  3. METOPROLOL SUCCINATE [Concomitant]
  4. VALSARTAN [Concomitant]
  5. ATORVASTATIN [Concomitant]

REACTIONS (2)
  - BLOOD URINE [None]
  - HAEMOGLOBIN DECREASED [None]
